FAERS Safety Report 8915769 (Version 3)
Quarter: 2012Q4

REPORT INFORMATION
  Report Type: 
  Country: DE (occurrence: SE)
  Receive Date: 20121119
  Receipt Date: 20121231
  Transmission Date: 20130627
  Serious: Yes (Other)
  Sender: FDA-Public Use
  Company Number: SE-FRI-1000040477

PATIENT
  Sex: Male
  Weight: 70 kg

DRUGS (6)
  1. ROFLUMILAST [Suspect]
     Indication: CHRONIC OBSTRUCTIVE PULMONARY DISEASE
     Dosage: 500 mcg
     Dates: start: 201201, end: 2012
  2. ROFLUMILAST [Suspect]
     Indication: CHRONIC OBSTRUCTIVE PULMONARY DISEASE
     Dosage: 125 mcg
     Dates: start: 201201, end: 2012
  3. ROFLUMILAST [Suspect]
     Dosage: 500 mcg
     Dates: start: 2012
  4. LOSARTAN [Concomitant]
     Indication: HYPERTENSION
  5. SERETIDE [Concomitant]
     Route: 055
  6. VENTOLINE [Concomitant]
     Route: 055

REACTIONS (9)
  - Panic attack [Recovered/Resolved]
  - Depressed mood [Recovered/Resolved]
  - Weight decreased [Recovered/Resolved]
  - Anxiety [Recovered/Resolved]
  - Depression [Recovered/Resolved]
  - Nervousness [Recovered/Resolved]
  - Nightmare [Recovered/Resolved]
  - Decreased appetite [Recovered/Resolved]
  - Medication error [Unknown]
